FAERS Safety Report 8801138 (Version 2)
Quarter: 2012Q4

REPORT INFORMATION
  Report Type: 
  Country: US (occurrence: US)
  Receive Date: 20120921
  Receipt Date: 20121115
  Transmission Date: 20130627
  Serious: Yes (Hospitalization)
  Sender: FDA-Public Use
  Company Number: US-GLAXOSMITHKLINE-A0990586A

PATIENT
  Age: 56 Year
  Sex: Female
  Weight: 56 kg

DRUGS (6)
  1. ARZERRA [Suspect]
     Indication: CHRONIC LYMPHOCYTIC LEUKAEMIA
     Dosage: 300MG See dosage text
     Route: 042
     Dates: start: 20120801
  2. LEVOTHYROXINE [Concomitant]
     Dosage: 150MCG Per day
  3. DECADRON [Concomitant]
     Indication: PREMEDICATION
  4. TYLENOL [Concomitant]
     Indication: PREMEDICATION
  5. BENADRYL [Concomitant]
     Indication: PREMEDICATION
  6. PEPCID [Concomitant]
     Indication: PREMEDICATION

REACTIONS (5)
  - Throat tightness [Recovering/Resolving]
  - Erythema [Unknown]
  - Rash [Unknown]
  - Urticaria [Unknown]
  - Product quality issue [Unknown]
